FAERS Safety Report 6358659-8 (Version None)
Quarter: 2009Q3

REPORT INFORMATION
  Report Type: 
  Country: None (occurrence: None)
  Receive Date: 20090916
  Receipt Date: 20090819
  Transmission Date: 20100115
  Serious: No
  Sender: FDA-Public Use
  Company Number: PR-ABBOTT-09P-131-0592524-00

PATIENT
  Sex: Female

DRUGS (3)
  1. TRILIPIX [Suspect]
     Indication: HYPERLIPIDAEMIA
     Route: 048
     Dates: start: 20090401, end: 20090601
  2. SYNTHROID [Concomitant]
     Indication: HYPERTHYROIDISM
     Route: 048
     Dates: start: 20060101
  3. SYNTHROID [Concomitant]
     Indication: BLOOD THYROID STIMULATING HORMONE INCREASED
     Route: 048

REACTIONS (1)
  - BLOOD THYROID STIMULATING HORMONE INCREASED [None]
